FAERS Safety Report 11137662 (Version 1)
Quarter: 2015Q2

REPORT INFORMATION
  Report Type: Spontaneous
  Country: US (occurrence: US)
  Receive Date: 20150526
  Receipt Date: 20150526
  Transmission Date: 20150821
  Serious: Yes (Hospitalization)
  Sender: FDA-Public Use
  Company Number: US-INCYTE CORPORATION-2015IN001724

PATIENT
  Age: 55 Year
  Sex: Female

DRUGS (6)
  1. MELATONIN [Concomitant]
     Active Substance: MELATONIN
     Dosage: 3 MG, QD (AT HS)
     Route: 048
  2. HYDROMORPHONE [Concomitant]
     Active Substance: HYDROMORPHONE
     Dosage: 4 MG, 6 HOURS
     Route: 048
  3. CLONIDINE. [Concomitant]
     Active Substance: CLONIDINE
     Dosage: 0.1 MG, QD
     Route: 048
  4. FLUOXETINE [Concomitant]
     Active Substance: FLUOXETINE\FLUOXETINE HYDROCHLORIDE
     Dosage: 20 MG, QD
     Route: 048
  5. LIDOCAINE. [Concomitant]
     Active Substance: LIDOCAINE
     Dosage: 2 PATCHES Q 24 HOURS
     Route: 062
  6. JAKAFI [Suspect]
     Active Substance: RUXOLITINIB
     Indication: MYELOFIBROSIS
     Dosage: 5 MG, BID
     Route: 048
     Dates: start: 20150203

REACTIONS (24)
  - Pleural effusion [Unknown]
  - Mental status changes [Unknown]
  - Haematocrit decreased [Unknown]
  - Escherichia bacteraemia [Unknown]
  - Pulmonary oedema [Unknown]
  - Tachypnoea [Unknown]
  - Depressed mood [Unknown]
  - Hypertension [Unknown]
  - Agitation [Unknown]
  - Hyperglycaemia [Unknown]
  - Acute myeloid leukaemia [Unknown]
  - Coagulopathy [Unknown]
  - Oedema peripheral [Unknown]
  - Hypoxia [Unknown]
  - Ileus [Unknown]
  - Colitis [Unknown]
  - Haemoglobin decreased [Unknown]
  - Febrile neutropenia [Unknown]
  - Vaginal haemorrhage [Unknown]
  - Nausea [Unknown]
  - White blood cell count decreased [Unknown]
  - Platelet count decreased [Unknown]
  - Hypoglycaemia [Unknown]
  - Diarrhoea [Unknown]

NARRATIVE: CASE EVENT DATE: 201504
